FAERS Safety Report 12749674 (Version 2)
Quarter: 2016Q3

REPORT INFORMATION
  Report Type: Report from Study
  Country: US (occurrence: US)
  Receive Date: 20160916
  Receipt Date: 20160928
  Transmission Date: 20161109
  Serious: Yes (Hospitalization)
  Sender: FDA-Public Use
  Company Number: US-BRISTOL-MYERS SQUIBB COMPANY-BMS-2015-028764

PATIENT
  Age: 69 Year
  Sex: Male
  Weight: 87.1 kg

DRUGS (27)
  1. NIVOLUMAB [Suspect]
     Active Substance: NIVOLUMAB
     Dosage: 3 MG/KG, UNK (TOTAL DOSE: 220 MG)
     Route: 042
     Dates: start: 20150603, end: 20150603
  2. NIVOLUMAB [Suspect]
     Active Substance: NIVOLUMAB
     Dosage: 3 MG/KG, UNK (TOTAL DOSE: 220 MG)
     Route: 042
     Dates: start: 20150812, end: 20150812
  3. NIVOLUMAB [Suspect]
     Active Substance: NIVOLUMAB
     Dosage: 3 MG/KG, UNK (TOTAL DOSE: 220 MG)
     Route: 042
     Dates: start: 20150923, end: 20150923
  4. NIVOLUMAB [Suspect]
     Active Substance: NIVOLUMAB
     Dosage: 3 MG/KG, UNK (TOTAL DOSE: 218 MG)
     Route: 042
     Dates: start: 20151021, end: 20151021
  5. NIVOLUMAB [Suspect]
     Active Substance: NIVOLUMAB
     Dosage: 3 MG/KG, UNK (TOTAL DOSE: 220 MG)
     Route: 042
     Dates: start: 20151104, end: 20151104
  6. NIVOLUMAB [Suspect]
     Active Substance: NIVOLUMAB
     Dosage: 1 MG/KG, UNK (TOTAL DOSE: 86 MG)
     Route: 042
     Dates: start: 20150121, end: 20150121
  7. NIVOLUMAB [Suspect]
     Active Substance: NIVOLUMAB
     Dosage: 3 MG/KG, UNK (TOTAL DOSE: 215 MG)
     Route: 042
     Dates: start: 20150617, end: 20150617
  8. NIVOLUMAB [Suspect]
     Active Substance: NIVOLUMAB
     Dosage: 3 MG/KG, UNK (TOTAL DOSE: 222 MG)
     Route: 042
     Dates: start: 20150826, end: 20150826
  9. NIVOLUMAB [Suspect]
     Active Substance: NIVOLUMAB
     Dosage: 3 MG/KG, UNK (TOTAL DOSE: 216 MG)
     Route: 042
     Dates: start: 20151007, end: 20151007
  10. IPILIMUMAB [Suspect]
     Active Substance: IPILIMUMAB
     Dosage: 3 MG/KG, UNK
     Route: 042
     Dates: start: 20150211, end: 20150211
  11. NIVOLUMAB [Suspect]
     Active Substance: NIVOLUMAB
     Dosage: 1 MG/KG, UNK (TOTAL DOSE: 78 MG)
     Route: 042
     Dates: start: 20150211, end: 20150211
  12. NIVOLUMAB [Suspect]
     Active Substance: NIVOLUMAB
     Dosage: 3 MG/KG, UNK (TOTAL DOSE: 227 MG)
     Route: 042
     Dates: start: 20150715, end: 20150715
  13. IPILIMUMAB [Suspect]
     Active Substance: IPILIMUMAB
     Indication: MALIGNANT MELANOMA
     Dosage: 3 MG/KG, UNK
     Route: 042
     Dates: start: 20141229, end: 20141229
  14. TESTOSTERONE. [Concomitant]
     Active Substance: TESTOSTERONE
     Indication: PRODUCT USED FOR UNKNOWN INDICATION
     Dosage: 5 G, UNK
     Route: 061
     Dates: start: 20150402
  15. NIVOLUMAB [Suspect]
     Active Substance: NIVOLUMAB
     Dosage: 3 MG/KG, UNK (TOTAL DOSE: 219 MG)
     Route: 042
     Dates: start: 20150521, end: 20150521
  16. NIVOLUMAB [Suspect]
     Active Substance: NIVOLUMAB
     Dosage: 3 MG/KG, UNK (TOTAL DOSE: 225 MG)
     Route: 042
     Dates: start: 20150729, end: 20150729
  17. IMODIUM [Concomitant]
     Active Substance: LOPERAMIDE HYDROCHLORIDE
     Indication: PRODUCT USED FOR UNKNOWN INDICATION
     Dosage: UNK MG, UNK
     Route: 048
     Dates: start: 20150211
  18. NIVOLUMAB [Suspect]
     Active Substance: NIVOLUMAB
     Indication: MALIGNANT MELANOMA
     Dosage: 1 MG/KG, UNK (TOTAL DOSE: 87MG)
     Route: 042
     Dates: start: 20141229, end: 20141229
  19. IPILIMUMAB [Suspect]
     Active Substance: IPILIMUMAB
     Dosage: 3 MG/KG, UNK
     Route: 042
     Dates: start: 20150121, end: 20150121
  20. IPILIMUMAB [Suspect]
     Active Substance: IPILIMUMAB
     Dosage: 3 MG/KG, UNK
     Route: 042
     Dates: start: 20150304, end: 20150304
  21. PREDNISONE. [Concomitant]
     Active Substance: PREDNISONE
     Indication: PRODUCT USED FOR UNKNOWN INDICATION
     Dosage: UNK MG, UNK
     Route: 048
     Dates: start: 20150327
  22. NIVOLUMAB [Suspect]
     Active Substance: NIVOLUMAB
     Dosage: 1 MG/KG, UNK (TOTAL DOSE: 79 MG)
     Route: 042
     Dates: start: 20150304, end: 20150304
  23. NIVOLUMAB [Suspect]
     Active Substance: NIVOLUMAB
     Dosage: 3 MG/KG, UNK (TOTAL DOSE: 218 MG)
     Route: 042
     Dates: start: 20150422, end: 20150422
  24. NIVOLUMAB [Suspect]
     Active Substance: NIVOLUMAB
     Dosage: 3 MG/KG, UNK (TOTAL DOSE: 222 MG)
     Route: 042
     Dates: start: 20150702, end: 20150702
  25. NIVOLUMAB [Suspect]
     Active Substance: NIVOLUMAB
     Dosage: 3 MG/KG, UNK (TOTAL DOSE: 218 MG)
     Route: 042
     Dates: start: 20150910, end: 20150910
  26. KETOCONAZOLE. [Concomitant]
     Active Substance: KETOCONAZOLE
     Indication: PRODUCT USED FOR UNKNOWN INDICATION
     Dosage: 2 %, UNK
     Route: 061
     Dates: start: 20141210
  27. COMPAZINE [Concomitant]
     Active Substance: PROCHLORPERAZINE MALEATE
     Indication: PRODUCT USED FOR UNKNOWN INDICATION
     Dosage: 10 MG, UNK
     Route: 048
     Dates: start: 20150211

REACTIONS (1)
  - Atrial fibrillation [Recovered/Resolved]

NARRATIVE: CASE EVENT DATE: 20150428
